FAERS Safety Report 7777285-7 (Version None)
Quarter: 2011Q3

REPORT INFORMATION
  Report Type: 
  Country: None (occurrence: None)
  Receive Date: 20110926
  Receipt Date: 20110913
  Transmission Date: 20111222
  Serious: Yes (Hospitalization)
  Sender: FDA-Public Use
  Company Number: IT-BAYER-2011-083696

PATIENT
  Age: 70 Year
  Sex: Male

DRUGS (4)
  1. HUMULIN R [Concomitant]
  2. ASPIRIN [Suspect]
     Indication: TRANSIENT ISCHAEMIC ATTACK
     Dosage: DAILY DOSE 160 MG
     Route: 048
     Dates: start: 20101001, end: 20110818
  3. HUMULIN I [Concomitant]
     Indication: DIABETES MELLITUS
  4. ASPIRIN [Suspect]
     Indication: MYOCARDIAL INFARCTION
     Dosage: 100 MG, QD
     Route: 048
     Dates: start: 20060101, end: 20100930

REACTIONS (2)
  - MALLORY-WEISS SYNDROME [None]
  - GASTRIC ULCER HAEMORRHAGE [None]
